FAERS Safety Report 21125298 (Version 1)
Quarter: 2022Q3

REPORT INFORMATION
  Report Type: Spontaneous
  Country: US (occurrence: US)
  Receive Date: 20220725
  Receipt Date: 20220725
  Transmission Date: 20221027
  Serious: Yes (Other)
  Sender: FDA-Public Use
  Company Number: US-AMNEAL PHARMACEUTICALS-2022-AMRX-02162

PATIENT
  Age: 21 Year
  Sex: Female

DRUGS (1)
  1. BACLOFEN [Suspect]
     Active Substance: BACLOFEN
     Indication: Back pain
     Route: 065

REACTIONS (5)
  - Lethargy [Unknown]
  - Toxicity to various agents [Unknown]
  - Dizziness [Unknown]
  - Hallucinations, mixed [Unknown]
  - Treatment noncompliance [Unknown]
